FAERS Safety Report 18645578 (Version 1)
Quarter: 2020Q4

REPORT INFORMATION
  Report Type: Report from Study
  Country: CA (occurrence: CA)
  Receive Date: 20201221
  Receipt Date: 20201221
  Transmission Date: 20210114
  Serious: Yes (Hospitalization, Other)
  Sender: FDA-Public Use
  Company Number: CA-JNJFOC-20160910344

PATIENT
  Age: 70 Year
  Sex: Female
  Weight: 69 kg

DRUGS (4)
  1. PREDNISONE. [Concomitant]
     Active Substance: PREDNISONE
     Route: 048
     Dates: start: 20160823
  2. REMICADE [Suspect]
     Active Substance: INFLIXIMAB
     Indication: COLITIS ULCERATIVE
     Route: 042
     Dates: start: 20160831
  3. AZATHIOPRINE. [Concomitant]
     Active Substance: AZATHIOPRINE
     Route: 048
     Dates: start: 20160604
  4. MEZAVANT [Concomitant]
     Active Substance: MESALAMINE
     Route: 048
     Dates: start: 20160604

REACTIONS (5)
  - Intestinal perforation [Unknown]
  - Gastrointestinal inflammation [Unknown]
  - Adverse event [Unknown]
  - Clostridium difficile infection [Unknown]
  - Surgery [Unknown]

NARRATIVE: CASE EVENT DATE: 2016
